FAERS Safety Report 6496761-0 (Version None)
Quarter: 2009Q4

REPORT INFORMATION
  Report Type: 
  Country: None (occurrence: None)
  Receive Date: 20091211
  Receipt Date: 20091130
  Transmission Date: 20100525
  Serious: Yes (Hospitalization)
  Sender: FDA-Public Use
  Company Number: 2009SP038888

PATIENT
  Age: 80 Year
  Sex: Male

DRUGS (1)
  1. REXER FLAS (MIRTAZAPINE) [Suspect]
     Indication: DEPRESSION
     Dosage: 30 MG;QD;PO
     Route: 048
     Dates: start: 20090114, end: 20090515

REACTIONS (1)
  - ARTHRITIS INFECTIVE [None]
